FAERS Safety Report 25945288 (Version 1)
Quarter: 2025Q4

REPORT INFORMATION
  Report Type: Spontaneous
  Country: None (occurrence: EU)
  Receive Date: 20251021
  Receipt Date: 20251021
  Transmission Date: 20260117
  Serious: Yes (Other)
  Sender: ALNYLAM PHARMACEUTICALS
  Company Number: EU-ALNYLAM PHARMACEUTICALS, INC.-ALN-2025-006415

PATIENT
  Age: 52 Year

DRUGS (2)
  1. OXLUMO [Suspect]
     Active Substance: LUMASIRAN
     Indication: Primary hyperoxaluria
     Dosage: UNK
     Route: 065
  2. VITAMIN B6 [Concomitant]
     Active Substance: PYRIDOXINE HYDROCHLORIDE
     Indication: Primary hyperoxaluria
     Dosage: UNK
     Route: 065

REACTIONS (8)
  - Renal transplant [Unknown]
  - Acute kidney injury [Unknown]
  - Renal artery stenosis [Unknown]
  - Oxalosis [Unknown]
  - Post procedural haematoma [Unknown]
  - Surgery [Unknown]
  - Urine oxalate decreased [Unknown]
  - Glycolic acid decreased [Unknown]
